FAERS Safety Report 12984621 (Version 1)
Quarter: 2016Q4

REPORT INFORMATION
  Report Type: Spontaneous
  Country: CA (occurrence: CA)
  Receive Date: 20161129
  Receipt Date: 20161129
  Transmission Date: 20170207
  Serious: Yes (Other)
  Sender: FDA-Public Use
  Company Number: CA-GLAXOSMITHKLINE-CA2016GSK176629

PATIENT
  Age: 48 Year
  Sex: Female

DRUGS (5)
  1. BETAHISTINE [Concomitant]
     Active Substance: BETAHISTINE
  2. QUETIAPINE. [Concomitant]
     Active Substance: QUETIAPINE
  3. GABAPENTIN. [Concomitant]
     Active Substance: GABAPENTIN
  4. BUPROPION HCL [Suspect]
     Active Substance: BUPROPION HYDROCHLORIDE
  5. CYCLOBENZAPRINE [Concomitant]
     Active Substance: CYCLOBENZAPRINE

REACTIONS (1)
  - Drug dependence [Unknown]
